FAERS Safety Report 17142374 (Version 4)
Quarter: 2020Q1

REPORT INFORMATION
  Report Type: Spontaneous
  Country: IT (occurrence: IT)
  Receive Date: 20191211
  Receipt Date: 20200304
  Transmission Date: 20200409
  Serious: Yes (Life-Threatening, Hospitalization, Disabling, Other)
  Sender: FDA-Public Use
  Company Number: IT-BAUSCH-BL-2019-064709

PATIENT
  Age: 57 Year
  Sex: Female
  Weight: 75 kg

DRUGS (1)
  1. PLENVU [Suspect]
     Active Substance: ASCORBIC ACID\POLYETHYLENE GLYCOL 3350\POTASSIUM CHLORIDE\SODIUM ASCORBATE\SODIUM CHLORIDE\SODIUM SULFATE
     Indication: BOWEL PREPARATION
     Dosage: DOSE 1 AND 2 (AFTER EACH DOSE, 500-1000 ML OF WATER WAS TAKEN)
     Route: 048
     Dates: start: 20191119, end: 20191119

REACTIONS (19)
  - Malaise [Recovered/Resolved]
  - Fatigue [Not Recovered/Not Resolved]
  - Pain [Recovered/Resolved]
  - Somnolence [Recovered/Resolved]
  - Abdominal pain [Recovered/Resolved]
  - Vomiting [Recovered/Resolved]
  - Abscess [Recovered/Resolved]
  - Asthenia [Recovered/Resolved]
  - Thirst [Recovered/Resolved with Sequelae]
  - Proctalgia [Recovered/Resolved]
  - Nausea [Recovered/Resolved]
  - Abdominal distension [Recovered/Resolved]
  - Anorectal discomfort [Recovered/Resolved]
  - Eructation [Recovering/Resolving]
  - Chills [Recovered/Resolved]
  - Abdominal sepsis [Recovered/Resolved]
  - Intestinal obstruction [Recovered/Resolved]
  - Diverticulitis [Not Recovered/Not Resolved]
  - Gastrointestinal disorder [Not Recovered/Not Resolved]

NARRATIVE: CASE EVENT DATE: 20191119
